FAERS Safety Report 5996617-3 (Version None)
Quarter: 2008Q4

REPORT INFORMATION
  Report Type: 
  Country: None (occurrence: None)
  Receive Date: 20081212
  Receipt Date: 20081021
  Transmission Date: 20090506
  Serious: Yes (Hospitalization)
  Sender: FDA-Public Use
  Company Number: US-ABBOTT-08P-163-0482999-00

PATIENT
  Sex: Female

DRUGS (12)
  1. HUMIRA [Suspect]
     Indication: PSORIASIS
     Dates: start: 20071001
  2. MOMETASONE FUROATE [Concomitant]
     Indication: HYPERSENSITIVITY
  3. MOMETASONE FUROATE [Concomitant]
     Indication: SINUS DISORDER
  4. NARINE [Concomitant]
     Indication: HYPERSENSITIVITY
  5. NARINE [Concomitant]
     Indication: SINUS DISORDER
  6. VENLAFAXINE HCL [Concomitant]
     Indication: DEPRESSION
     Route: 048
  7. METOPROLOL [Concomitant]
     Indication: HYPERTENSION
     Route: 048
  8. AMLODIPINE [Concomitant]
     Indication: HYPERTENSION
     Route: 048
  9. ACETYLSALICYLIC ACID SRT [Concomitant]
     Indication: CARDIAC DISORDER
     Route: 048
  10. MULTI-VITAMIN [Concomitant]
     Indication: DRUG USE FOR UNKNOWN INDICATION
     Route: 048
  11. INFLUENZA VIRUS VACCINE POLYVALENT [Concomitant]
     Indication: DRUG USE FOR UNKNOWN INDICATION
     Dosage: TAKES REGULARLY
  12. PNEUMOCOCCAL VACCINE [Concomitant]
     Indication: DRUG USE FOR UNKNOWN INDICATION

REACTIONS (2)
  - SINUS DISORDER [None]
  - UPPER RESPIRATORY TRACT INFECTION [None]
